FAERS Safety Report 9181752 (Version 3)
Quarter: 2013Q3

REPORT INFORMATION
  Report Type: Spontaneous
  Country: US (occurrence: US)
  Receive Date: 20130322
  Receipt Date: 20130701
  Transmission Date: 20140515
  Serious: No
  Sender: FDA-Public Use
  Company Number: US-THROMBOGENICS INC-JET-2013-022

PATIENT
  Sex: 0

DRUGS (2)
  1. JETREA [Suspect]
     Indication: VITREOUS ADHESIONS
     Dosage: 0.125 MG, ONE TIME DOSE
     Route: 031
     Dates: start: 20130211, end: 20130211
  2. JETREA [Suspect]
     Indication: RETINAL OEDEMA

REACTIONS (6)
  - Migraine with aura [Recovered/Resolved]
  - Photopsia [Recovered/Resolved]
  - Chromatopsia [Recovered/Resolved]
  - Visual acuity reduced [Recovered/Resolved]
  - Visual impairment [Recovered/Resolved]
  - Vision blurred [Recovered/Resolved]
